FAERS Safety Report 18590574 (Version 1)
Quarter: 2020Q4

REPORT INFORMATION
  Report Type: Spontaneous
  Country: JP (occurrence: JP)
  Receive Date: 20201208
  Receipt Date: 20201208
  Transmission Date: 20210114
  Serious: No
  Sender: FDA-Public Use
  Company Number: JP-LUPIN PHARMACEUTICALS INC.-2020-09674

PATIENT
  Age: 35 Year
  Sex: Female

DRUGS (5)
  1. POLYVINYL ALCOHOL;POVIDONE-IODINE [Suspect]
     Active Substance: POLYVINYL ALCOHOL\POVIDONE-IODINE
     Indication: CORYNEBACTERIUM INFECTION
     Dosage: UNK
     Route: 065
  2. CIPROFLOXACIN. [Suspect]
     Active Substance: CIPROFLOXACIN
     Indication: CORYNEBACTERIUM INFECTION
     Dosage: 500 MILLIGRAM, QD
     Route: 048
  3. VORICONAZOLE. [Suspect]
     Active Substance: VORICONAZOLE
     Dosage: 400 MILLIGRAM, QD
     Route: 048
  4. LEVOFLOXACIN. [Suspect]
     Active Substance: LEVOFLOXACIN
     Indication: CORYNEBACTERIUM INFECTION
     Dosage: UNK (EYE DROPS)
     Route: 065
  5. VORICONAZOLE. [Suspect]
     Active Substance: VORICONAZOLE
     Indication: CORYNEBACTERIUM INFECTION
     Dosage: 600 MILLIGRAM, QD
     Route: 048

REACTIONS (1)
  - Drug eruption [Unknown]
